FAERS Safety Report 6404802-1 (Version None)
Quarter: 2009Q4

REPORT INFORMATION
  Report Type: 
  Country: None (occurrence: None)
  Receive Date: 20091016
  Receipt Date: 20091014
  Transmission Date: 20100525
  Serious: Yes (Death, Other)
  Sender: FDA-Public Use
  Company Number: PT-GILEAD-2009-0024478

PATIENT
  Sex: Male
  Weight: 60 kg

DRUGS (10)
  1. TRUVADA [Suspect]
     Indication: HIV INFECTION
     Route: 048
     Dates: start: 20090203, end: 20090312
  2. RALTEGRAVIR [Concomitant]
     Indication: HIV INFECTION
     Route: 048
     Dates: start: 20090203, end: 20090312
  3. RITONAVIR [Concomitant]
     Indication: HIV INFECTION
     Dates: start: 20090203, end: 20090312
  4. DARUNAVIR ETHANOLATE [Concomitant]
     Indication: HIV INFECTION
     Route: 048
     Dates: start: 20090203, end: 20090312
  5. FLUCONAZOLE [Concomitant]
     Route: 048
     Dates: start: 20080201, end: 20090312
  6. FOLINIC ACID [Concomitant]
     Route: 048
     Dates: start: 20080201, end: 20090312
  7. ETHAMBUTOL DIHYDROCHLORIDE [Concomitant]
     Indication: MYCOBACTERIUM AVIUM COMPLEX INFECTION
     Route: 048
     Dates: start: 20080805, end: 20090312
  8. RIFABUTIN [Concomitant]
     Indication: MYCOBACTERIUM AVIUM COMPLEX INFECTION
     Route: 048
     Dates: start: 20080805, end: 20090312
  9. CLARITHROMYCIN [Concomitant]
     Indication: MYCOBACTERIUM AVIUM COMPLEX INFECTION
     Route: 048
     Dates: start: 20080805, end: 20090312
  10. COTRIM [Concomitant]
     Route: 048
     Dates: start: 20090201, end: 20090312

REACTIONS (13)
  - BLOOD BICARBONATE DECREASED [None]
  - BLOOD CREATINE PHOSPHOKINASE INCREASED [None]
  - BLOOD CREATININE INCREASED [None]
  - BLOOD LACTIC ACID INCREASED [None]
  - DECREASED APPETITE [None]
  - JAUNDICE [None]
  - METABOLIC ACIDOSIS [None]
  - MITOCHONDRIAL TOXICITY [None]
  - MYALGIA [None]
  - PYREXIA [None]
  - RENAL FAILURE ACUTE [None]
  - RHABDOMYOLYSIS [None]
  - VOMITING [None]
